FAERS Safety Report 12194240 (Version 1)
Quarter: 2016Q1

REPORT INFORMATION
  Report Type: Spontaneous
  Country: None (occurrence: US)
  Receive Date: 20160321
  Receipt Date: 20160321
  Transmission Date: 20160526
  Serious: No
  Sender: FDA-Public Use
  Company Number: US-SUN PHARMACEUTICAL INDUSTRIES LTD-2016SUN00083

PATIENT
  Age: 60 Year
  Sex: Female

DRUGS (1)
  1. TECHNETIUM TC99M MEBROFENIN [Suspect]
     Active Substance: TECHNETIUM TC-99M MEBROFENIN
     Indication: HEPATOBILIARY SCAN
     Dosage: 6.15 MCI, ONCE
     Route: 042
     Dates: start: 20150324, end: 20150324

REACTIONS (1)
  - Burning sensation [Not Recovered/Not Resolved]

NARRATIVE: CASE EVENT DATE: 20150324
